FAERS Safety Report 5324799-5 (Version None)
Quarter: 2007Q2

REPORT INFORMATION
  Report Type: 
  Country: None (occurrence: None)
  Receive Date: 20070515
  Receipt Date: 20070509
  Transmission Date: 20071010
  Serious: Yes (Other)
  Sender: FDA-Public Use
  Company Number: PHBS2007LB07995

PATIENT
  Age: 20 Year
  Sex: Female

DRUGS (6)
  1. AZATHIOPRINE [Suspect]
     Indication: RENAL TRANSPLANT
  2. PREDNISONE TAB [Suspect]
     Indication: RENAL TRANSPLANT
  3. NIFEDIPINE [Concomitant]
     Indication: BLOOD PRESSURE ABNORMAL
  4. BISOPROLOL FUMARATE [Concomitant]
     Indication: BLOOD PRESSURE ABNORMAL
  5. ANALGESICS [Concomitant]
     Indication: HEADACHE
  6. CYCLOSPORINE [Suspect]
     Indication: RENAL TRANSPLANT

REACTIONS (4)
  - HEADACHE [None]
  - HYPERREFLEXIA [None]
  - INTRACRANIAL VENOUS SINUS THROMBOSIS [None]
  - OPTIC DISCS BLURRED [None]
